FAERS Safety Report 7292814-8 (Version None)
Quarter: 2011Q1

REPORT INFORMATION
  Report Type: 
  Country: None (occurrence: None)
  Receive Date: 20110203
  Receipt Date: 20110125
  Transmission Date: 20110831
  Serious: Yes (Hospitalization)
  Sender: FDA-Public Use
  Company Number: 8018167

PATIENT
  Sex: Male
  Weight: 84 kg

DRUGS (3)
  1. METHOTREXATE [Concomitant]
  2. CIMZIA [Suspect]
     Indication: RHEUMATOID ARTHRITIS
     Dosage: (400 MG, DOSE FREQ: ONCE MONTHLY - NR OF DOSES: 6 SUBCUTANEOUS) (400 MG, DOSE FREQ: ONCE MONTHLY SUB
     Route: 058
     Dates: start: 20031117
  3. CIMZIA [Suspect]
     Indication: RHEUMATOID ARTHRITIS
     Dosage: (400 MG, DOSE FREQ: ONCE MONTHLY - NR OF DOSES: 6 SUBCUTANEOUS) (400 MG, DOSE FREQ: ONCE MONTHLY SUB
     Route: 058
     Dates: start: 20030519, end: 20031006

REACTIONS (5)
  - OESOPHAGITIS [None]
  - OPTIC NERVE DISORDER [None]
  - HYPERTENSION [None]
  - SICCA SYNDROME [None]
  - CONJUNCTIVITIS [None]
